FAERS Safety Report 8093117-4 (Version None)
Quarter: 2012Q1

REPORT INFORMATION
  Report Type: 
  Country: None (occurrence: None)
  Receive Date: 20120128
  Receipt Date: 20111025
  Transmission Date: 20120608
  Serious: No
  Sender: FDA-Public Use
  Company Number: US-ABBOTT-11P-163-0850514-00

PATIENT
  Age: 51 Year
  Sex: Female

DRUGS (4)
  1. METHOTREXATE [Concomitant]
     Indication: PRODUCT USED FOR UNKNOWN INDICATION
  2. HUMIRA [Suspect]
     Indication: RHEUMATOID ARTHRITIS
     Dates: start: 20110809, end: 20110823
  3. PEPCID [Concomitant]
     Indication: PRODUCT USED FOR UNKNOWN INDICATION
     Dosage: 1 IN AM AND 1 IN PM
  4. FOLIC ACID [Concomitant]
     Indication: PRODUCT USED FOR UNKNOWN INDICATION

REACTIONS (11)
  - MYALGIA [None]
  - SINUSITIS [None]
  - COUGH [None]
  - DYSURIA [None]
  - ALOPECIA [None]
  - MUSCULOSKELETAL STIFFNESS [None]
  - RHINORRHOEA [None]
  - OROPHARYNGEAL PAIN [None]
  - HEADACHE [None]
  - FUNGAL INFECTION [None]
  - OEDEMA PERIPHERAL [None]
